FAERS Safety Report 10983833 (Version 1)
Quarter: 2015Q2

REPORT INFORMATION
  Report Type: Spontaneous
  Country: US (occurrence: US)
  Receive Date: 20150403
  Receipt Date: 20150403
  Transmission Date: 20150821
  Serious: No
  Sender: FDA-Public Use
  Company Number: US-009507513-1503USA013087

PATIENT
  Age: 47 Year
  Sex: Male
  Weight: 90.7 kg

DRUGS (2)
  1. FLUCONAZOLE. [Concomitant]
     Active Substance: FLUCONAZOLE
     Indication: FUNGAL SKIN INFECTION
     Dosage: 10 MG, QD
     Dates: start: 20150309
  2. CLARITIN [Suspect]
     Active Substance: LORATADINE
     Indication: RASH
     Dosage: 10 MG, BID
     Route: 048
     Dates: start: 201503

REACTIONS (3)
  - Drug ineffective for unapproved indication [Unknown]
  - Overdose [Unknown]
  - Product use issue [Unknown]

NARRATIVE: CASE EVENT DATE: 201503
